FAERS Safety Report 4910145-5 (Version None)
Quarter: 2006Q1

REPORT INFORMATION
  Report Type: 
  Country: None (occurrence: None)
  Receive Date: 20060209
  Receipt Date: 20060119
  Transmission Date: 20060701
  Serious: Yes (Other)
  Sender: FDA-Public Use
  Company Number: US200601003218

PATIENT
  Age: 78 Year
  Sex: Female

DRUGS (3)
  1. HUMULIN N [Suspect]
     Dosage: SEE IMAGE
     Dates: start: 19980101
  2. HUMULIN N [Suspect]
     Dosage: SEE IMAGE
     Dates: start: 19980101
  3. HUMULIN N [Suspect]
     Dosage: SEE IMAGE
     Dates: start: 19980101

REACTIONS (4)
  - BLINDNESS UNILATERAL [None]
  - INJECTION SITE ERYTHEMA [None]
  - OPTIC NERVE INFARCTION [None]
  - PHARMACEUTICAL PRODUCT COMPLAINT [None]
